FAERS Safety Report 16992109 (Version 8)
Quarter: 2020Q4

REPORT INFORMATION
  Report Type: Report from Study
  Country: GB (occurrence: GB)
  Receive Date: 20191105
  Receipt Date: 20201106
  Transmission Date: 20210113
  Serious: Yes (Hospitalization)
  Sender: FDA-Public Use
  Company Number: GB-ROCHE-2454520

PATIENT
  Age: 74 Year
  Sex: Female
  Weight: 72.65 kg

DRUGS (4)
  1. BEVACIZUMAB. [Suspect]
     Active Substance: BEVACIZUMAB
     Indication: OVARIAN CANCER
     Dosage: DATE OF MOST RECENT DOSE OF BEVACIZUMAB PRIOR TO SAE: 08/OCT/2019
     Route: 042
     Dates: start: 20191008, end: 20191008
  2. BLINDED ASPIRIN [Suspect]
     Active Substance: ASPIRIN
     Indication: OVARIAN CANCER
     Dosage: DATE OF MOST RECENT DOSE OF ASPRIN PRIOR TO SAE: 22/OCT/2019
     Route: 048
     Dates: start: 20191008, end: 20191022
  3. ATEZOLIZUMAB. [Suspect]
     Active Substance: ATEZOLIZUMAB
     Indication: OVARIAN CANCER
     Dosage: DATE OF MOST RECENT DOSE OF ATEZOLIZUMAB PRIOR TO SAE: 08/OCT/2019
     Route: 042
     Dates: start: 20191008, end: 20191008
  4. PARACETAMOL [Concomitant]
     Active Substance: ACETAMINOPHEN
     Indication: PAIN
     Route: 048
     Dates: start: 20190924, end: 20191031

REACTIONS (6)
  - Fatigue [Unknown]
  - Dyspnoea [Unknown]
  - Autoimmune hepatitis [Recovered/Resolved]
  - Alanine aminotransferase increased [Unknown]
  - Autoimmune myocarditis [Recovered/Resolved with Sequelae]
  - Neurological symptom [Recovered/Resolved]

NARRATIVE: CASE EVENT DATE: 20191015
